FAERS Safety Report 12487132 (Version 1)
Quarter: 2016Q2

REPORT INFORMATION
  Report Type: Spontaneous
  Country: US (occurrence: None)
  Receive Date: 20160621
  Receipt Date: 20160621
  Transmission Date: 20160815
  Serious: Yes (Hospitalization, Other)
  Sender: FDA-Public Use
  Company Number: None

PATIENT
  Age: 85 Year
  Sex: Male
  Weight: 81.65 kg

DRUGS (7)
  1. CLINDAMYCIN 150 MG. CAP RAN [Suspect]
     Active Substance: CLINDAMYCIN PHOSPHATE
     Indication: TOOTH INFECTION
     Dosage: CLINDAMYCIN 150 MG [STRENGTH] QUANITY - 28 PILLS ?4 TIMES/DAY?BY MOUTH
     Route: 048
     Dates: start: 20160111, end: 20160118
  2. LUTIN [Concomitant]
  3. TYLENOL EXTRA [Concomitant]
  4. MULTI VIT [Concomitant]
  5. FOLIC ACID. [Concomitant]
     Active Substance: FOLIC ACID
  6. B-12 SHOTS [Concomitant]
  7. MEGA RED [Concomitant]

REACTIONS (1)
  - Diarrhoea [None]

NARRATIVE: CASE EVENT DATE: 20160207
